FAERS Safety Report 6812597-2 (Version None)
Quarter: 2010Q3

REPORT INFORMATION
  Report Type: 
  Country: None (occurrence: None)
  Receive Date: 20100701
  Receipt Date: 20100621
  Transmission Date: 20110219
  Serious: Yes (Other)
  Sender: FDA-Public Use
  Company Number: US-PFIZER INC-2010077533

PATIENT
  Sex: Male

DRUGS (1)
  1. CHANTIX [Suspect]
     Dosage: UNK
     Dates: start: 20100601

REACTIONS (4)
  - BALANCE DISORDER [None]
  - DYSSTASIA [None]
  - HALLUCINATION [None]
  - MUSCULAR WEAKNESS [None]
